FAERS Safety Report 19511625 (Version 2)
Quarter: 2022Q3

REPORT INFORMATION
  Report Type: Spontaneous
  Country: JP (occurrence: JP)
  Receive Date: 20210709
  Receipt Date: 20220714
  Transmission Date: 20221027
  Serious: Yes (Hospitalization)
  Sender: FDA-Public Use
  Company Number: JP-GLAXOSMITHKLINE-JP2021JPN146628

PATIENT

DRUGS (8)
  1. LAMICTAL [Suspect]
     Active Substance: LAMOTRIGINE
     Indication: Epilepsy
     Dosage: 25 MG, QD
     Route: 048
     Dates: start: 20210218, end: 20210228
  2. AUGMENTIN [Concomitant]
     Active Substance: AMOXICILLIN\CLAVULANATE POTASSIUM
     Dosage: 750 MG, 1D
     Dates: start: 20210301
  3. E KEPPRA TABLETS [Concomitant]
     Dosage: 2500 MG, 1D
     Route: 048
     Dates: end: 2021
  4. BONALON ORAL JELLY [Concomitant]
     Dosage: UNK
  5. DALACIN T GEL [Concomitant]
     Dosage: UNK
  6. DAIPHEN COMBINATION TABLETS [Concomitant]
     Dosage: UNK
  7. NEORAL CAPSULES [Concomitant]
     Dosage: 100 MG, 1D
  8. VIMPAT TABLET [Concomitant]
     Indication: Epilepsy
     Dosage: 300 MG, 1D

REACTIONS (3)
  - Eczema [Recovering/Resolving]
  - Swelling [Recovering/Resolving]
  - Pyrexia [Recovering/Resolving]

NARRATIVE: CASE EVENT DATE: 20210228
